FAERS Safety Report 9460114 (Version 1)
Quarter: 2013Q3

REPORT INFORMATION
  Report Type: Spontaneous
  Country: US (occurrence: US)
  Receive Date: 20130815
  Receipt Date: 20130815
  Transmission Date: 20140515
  Serious: Yes (Other)
  Sender: FDA-Public Use
  Company Number: US-PFIZER INC-2013237130

PATIENT
  Age: 58 Year
  Sex: Female
  Weight: 99.77 kg

DRUGS (2)
  1. LYRICA [Suspect]
     Indication: DIABETIC NEUROPATHY
     Dosage: 75 MG, 1X/DAY
     Route: 048
     Dates: end: 201304
  2. HYDROCODONE [Concomitant]
     Indication: NEURALGIA
     Dosage: UNK

REACTIONS (2)
  - Neoplasm malignant [Unknown]
  - Neoplasm recurrence [Unknown]
